FAERS Safety Report 25873461 (Version 2)
Quarter: 2025Q4

REPORT INFORMATION
  Report Type: Spontaneous
  Country: JP (occurrence: JP)
  Receive Date: 20251002
  Receipt Date: 20251015
  Transmission Date: 20260117
  Serious: Yes (Other)
  Sender: PFIZER
  Company Number: JP-PFIZER INC-PV202500117174

PATIENT
  Age: 66 Year
  Sex: Female
  Weight: 40 kg

DRUGS (6)
  1. FOSPHENYTOIN SODIUM [Suspect]
     Active Substance: FOSPHENYTOIN SODIUM
     Indication: Status epilepticus
     Dosage: 900 MG, 1X/DAY
     Route: 042
     Dates: start: 20250918, end: 20250918
  2. FOSPHENYTOIN SODIUM [Suspect]
     Active Substance: FOSPHENYTOIN SODIUM
     Dosage: 300 MG, DAILY
     Route: 042
     Dates: start: 20250919, end: 20250920
  3. LEVETIRACETAM [Concomitant]
     Active Substance: LEVETIRACETAM
     Dosage: 1000 MG, 1X/DAY
     Route: 041
     Dates: start: 20250916, end: 20250916
  4. LEVETIRACETAM [Concomitant]
     Active Substance: LEVETIRACETAM
     Dosage: 1500 MG, 1X/DAY
     Route: 041
     Dates: start: 20250917, end: 20250917
  5. LEVETIRACETAM [Concomitant]
     Active Substance: LEVETIRACETAM
     Dosage: 2000 MG, 1X/DAY
     Route: 041
     Dates: start: 20250918, end: 20250919
  6. LEVETIRACETAM [Concomitant]
     Active Substance: LEVETIRACETAM
     Dosage: 3000 MG, 1X/DAY
     Route: 041
     Dates: start: 20250920, end: 20250920

REACTIONS (2)
  - Anticonvulsant drug level below therapeutic [Recovering/Resolving]
  - Drug ineffective [Unknown]

NARRATIVE: CASE EVENT DATE: 20250922
